FAERS Safety Report 10203234 (Version 1)
Quarter: 2014Q2

REPORT INFORMATION
  Report Type: Report from Study
  Country: US (occurrence: US)
  Receive Date: 20140529
  Receipt Date: 20140529
  Transmission Date: 20141212
  Serious: Yes (Other)
  Sender: FDA-Public Use
  Company Number: US-ROCHE-1408984

PATIENT
  Sex: Male

DRUGS (2)
  1. NUTROPIN AQ [Suspect]
     Indication: GROWTH HORMONE DEFICIENCY
     Route: 058
     Dates: end: 201312
  2. NUTROPIN AQ [Suspect]
     Route: 058
     Dates: start: 201312

REACTIONS (3)
  - Pharyngitis streptococcal [Unknown]
  - Insulin-like growth factor increased [Unknown]
  - Drug dose omission [Unknown]
